APPROVED DRUG PRODUCT: ETHACRYNIC ACID
Active Ingredient: ETHACRYNIC ACID
Strength: 25MG
Dosage Form/Route: TABLET;ORAL
Application: A207262 | Product #001
Applicant: HIKMA PHARMACEUTICALS USA INC
Approved: Feb 23, 2017 | RLD: No | RS: No | Type: DISCN